FAERS Safety Report 8924035 (Version 3)
Quarter: 2013Q1

REPORT INFORMATION
  Report Type: Spontaneous
  Country: US (occurrence: US)
  Receive Date: 20121126
  Receipt Date: 20130123
  Transmission Date: 20140127
  Serious: Yes (Hospitalization, Other)
  Sender: FDA-Public Use
  Company Number: US-B.I. PHARMACEUTICALS,INC./RIDGEFIELD-2012-BI-00656BP

PATIENT
  Age: 82 Year
  Sex: Female

DRUGS (11)
  1. PRADAXA [Suspect]
     Indication: ATRIAL FIBRILLATION
     Dosage: 300 MG
     Dates: start: 201204
  2. WELLBUTRIN [Concomitant]
     Indication: PANIC ATTACK
     Dosage: 300 MG
     Route: 048
  3. XANAX [Concomitant]
     Indication: PANIC ATTACK
     Route: 048
  4. DILTIAZEM [Concomitant]
     Indication: HYPERTENSION
     Dosage: 240 MG
     Route: 048
  5. LIPITOR [Concomitant]
     Indication: BLOOD CHOLESTEROL INCREASED
     Dosage: 40 MG
     Route: 048
  6. SYNTHROID [Concomitant]
     Indication: HYPOTHYROIDISM
     Dosage: 100 MCG
     Route: 048
  7. SOTALOL [Concomitant]
     Dosage: 80 MG
     Route: 048
  8. TEMAZEPAM [Concomitant]
     Indication: INSOMNIA
     Route: 048
  9. 70/30 NOVOLIN [Concomitant]
     Indication: DIABETES MELLITUS
     Route: 058
  10. 70/30 NOVOLIN [Concomitant]
     Route: 058
  11. K DUR [Concomitant]
     Dosage: 10 MCG
     Route: 048

REACTIONS (5)
  - Cerebrovascular accident [Recovered/Resolved with Sequelae]
  - Oedema peripheral [Recovered/Resolved]
  - Dyspnoea [Not Recovered/Not Resolved]
  - Sensory disturbance [Not Recovered/Not Resolved]
  - Dermal cyst [Not Recovered/Not Resolved]
